FAERS Safety Report 5041372-7 (Version None)
Quarter: 2006Q2

REPORT INFORMATION
  Report Type: 
  Country: None (occurrence: None)
  Receive Date: 20060628
  Receipt Date: 20060612
  Transmission Date: 20061013
  Serious: Yes (Other)
  Sender: FDA-Public Use
  Company Number: DE-2006-013596

PATIENT
  Age: 51 Year
  Sex: Male

DRUGS (2)
  1. MABCAMPATH [Suspect]
     Indication: CHRONIC LYMPHOCYTIC LEUKAEMIA
     Dosage: SEE IMAGE
     Route: 042
  2. CYCLOPHOSPHAMIDE [Concomitant]

REACTIONS (11)
  - AUTOIMMUNE THYROIDITIS [None]
  - CHOLESTASIS [None]
  - CONJUNCTIVITIS [None]
  - DIARRHOEA [None]
  - ECZEMA [None]
  - ERYTHEMA [None]
  - GRAFT VERSUS HOST DISEASE [None]
  - GRAFT VERSUS HOST DISEASE IN SKIN [None]
  - HERPES ZOSTER [None]
  - PNEUMONITIS [None]
  - SICCA SYNDROME [None]
